FAERS Safety Report 9029760 (Version 2)
Quarter: 2013Q1

REPORT INFORMATION
  Report Type: Spontaneous
  Country: US (occurrence: US)
  Receive Date: 20130124
  Receipt Date: 20130225
  Transmission Date: 20140127
  Serious: Yes (Hospitalization, Other)
  Sender: FDA-Public Use
  Company Number: PHEH2012US025751

PATIENT
  Sex: Female

DRUGS (4)
  1. GILENYA [Suspect]
     Indication: MULTIPLE SCLEROSIS
     Dosage: 0.5 MG, QD
     Route: 048
     Dates: start: 20110614
  2. THYROID THERAPY [Concomitant]
  3. BACLOFEN [Concomitant]
  4. ZOLOFT [Concomitant]

REACTIONS (4)
  - Hallucination [Recovered/Resolved]
  - Pneumonia [Recovered/Resolved]
  - Somnolence [Recovering/Resolving]
  - Urinary tract infection [Recovered/Resolved]
